FAERS Safety Report 9700543 (Version 3)
Quarter: 2015Q1

REPORT INFORMATION
  Report Type: Report from Study
  Country: JP (occurrence: JP)
  Receive Date: 20131121
  Receipt Date: 20150313
  Transmission Date: 20150721
  Serious: Yes (Hospitalization)
  Sender: FDA-Public Use
  Company Number: PHHY2013JP132511

PATIENT
  Age: 59 Year
  Sex: Female
  Weight: 47 kg

DRUGS (6)
  1. ACZ885 [Suspect]
     Active Substance: CANAKINUMAB
     Indication: CRYOPYRIN ASSOCIATED PERIODIC SYNDROME
     Dosage: 150 MG, UNK
     Route: 058
     Dates: start: 20130404, end: 20130404
  2. ACZ885 [Suspect]
     Active Substance: CANAKINUMAB
     Dosage: 150 MG, UNK
     Route: 058
     Dates: start: 20130606, end: 20130606
  3. ACZ885 [Suspect]
     Active Substance: CANAKINUMAB
     Dosage: 150 MG, UNK
     Route: 058
     Dates: start: 20131114, end: 20131114
  4. ACZ885 [Suspect]
     Active Substance: CANAKINUMAB
     Dosage: 150 MG, UNK
     Route: 058
     Dates: start: 20130912, end: 20130912
  5. ACZ885 [Suspect]
     Active Substance: CANAKINUMAB
     Dosage: 150 MG, UNK
     Route: 058
     Dates: start: 20130725, end: 20130725
  6. ACZ885 [Suspect]
     Active Substance: CANAKINUMAB
     Dosage: 150 MG, UNK
     Route: 058
     Dates: start: 20140109

REACTIONS (9)
  - Disorientation [Recovered/Resolved]
  - Blood cholesterol increased [Unknown]
  - Cough [Recovered/Resolved]
  - Transient ischaemic attack [Recovered/Resolved]
  - Haematocrit decreased [Unknown]
  - Nasopharyngitis [Recovered/Resolved]
  - Productive cough [Recovered/Resolved]
  - Red blood cell count decreased [Unknown]
  - Haemoglobin decreased [Unknown]

NARRATIVE: CASE EVENT DATE: 20131024
